FAERS Safety Report 8473853-8 (Version None)
Quarter: 2012Q2

REPORT INFORMATION
  Report Type: 
  Country: None (occurrence: None)
  Receive Date: 20120628
  Receipt Date: 20120409
  Transmission Date: 20120825
  Serious: Yes (Death)
  Sender: FDA-Public Use
  Company Number: US-MYLANLABS-2011S1026440

PATIENT
  Age: 35 Year
  Sex: Male

DRUGS (26)
  1. ASPIRIN [Concomitant]
  2. PRAVASTATIN [Concomitant]
  3. SPIRIVA [Concomitant]
  4. BENZTROPINE MESYLATE [Concomitant]
  5. PROTONIX [Concomitant]
  6. SERTRALINE HYDROCHLORIDE [Concomitant]
  7. HYDROCODONE BITARTRATE [Concomitant]
  8. OXYBUTYNIN [Concomitant]
  9. SOMA [Concomitant]
  10. CLONIDINE [Concomitant]
  11. ATIVAN [Concomitant]
  12. VENTOLIN [Concomitant]
  13. NIACIN [Concomitant]
  14. SONATA [Concomitant]
  15. ANDROGEL [Concomitant]
  16. NICOTINE [Concomitant]
     Route: 062
  17. OXYCODONE HCL [Concomitant]
  18. METFORMIN HCL [Concomitant]
  19. FLONASE [Concomitant]
  20. CLOZAPINE [Suspect]
     Route: 048
  21. DOCUSATE [Concomitant]
  22. LEVETIRACETAM [Concomitant]
  23. RISPERIDONE [Concomitant]
     Dosage: 1MG AND 4MG
  24. ACETAMINOPHEN [Concomitant]
  25. POLYETHYLENE GLYCOL [Concomitant]
  26. IMIPRAMINE HCL [Concomitant]

REACTIONS (1)
  - PULMONARY EMBOLISM [None]
